FAERS Safety Report 12974284 (Version 3)
Quarter: 2018Q1

REPORT INFORMATION
  Report Type: Spontaneous
  Country: US (occurrence: US)
  Receive Date: 20161125
  Receipt Date: 20180201
  Transmission Date: 20180508
  Serious: Yes (Hospitalization, Other)
  Sender: FDA-Public Use
  Company Number: US-ASTRAZENECA-2016SF23586

PATIENT
  Age: 530 Month
  Sex: Male
  Weight: 64.4 kg

DRUGS (18)
  1. ALLOPURINOL. [Concomitant]
     Active Substance: ALLOPURINOL
     Indication: GOUT
     Dates: start: 20150218
  2. OMEPRAZOLE. [Concomitant]
     Active Substance: OMEPRAZOLE
     Route: 048
     Dates: start: 20150720
  3. SIMVASTATIN. [Concomitant]
     Active Substance: SIMVASTATIN
     Indication: GASTROOESOPHAGEAL REFLUX DISEASE
     Dates: start: 20150911
  4. FARXIGA [Suspect]
     Active Substance: DAPAGLIFLOZIN PROPANEDIOL
     Indication: TYPE 2 DIABETES MELLITUS
     Dosage: 5.0MG UNKNOWN
     Route: 048
     Dates: start: 20150108, end: 20150330
  5. FARXIGA [Suspect]
     Active Substance: DAPAGLIFLOZIN PROPANEDIOL
     Indication: TYPE 2 DIABETES MELLITUS
     Dosage: 10.0MG UNKNOWN
     Route: 048
     Dates: start: 20150331, end: 20150718
  6. MICARDIS [Concomitant]
     Active Substance: TELMISARTAN
     Indication: HYPERTENSION
     Dates: start: 20150116
  7. VYTORIN [Concomitant]
     Active Substance: EZETIMIBE\SIMVASTATIN
     Indication: BLOOD CHOLESTEROL
     Dosage: 1 TABLET DAILY
     Dates: start: 20150123
  8. METFORMIN [Concomitant]
     Active Substance: METFORMIN HYDROCHLORIDE
     Dates: start: 20150820
  9. PHENERGAN [Concomitant]
     Active Substance: PROMETHAZINE HYDROCHLORIDE
     Dosage: EVERY 5 HOURS AS NEEDED
     Dates: start: 20150718
  10. MONTELUKAST [Concomitant]
     Active Substance: MONTELUKAST SODIUM
     Route: 048
     Dates: start: 20150719
  11. KOMBIGLYZE XR [Concomitant]
     Active Substance: METFORMIN HYDROCHLORIDE\SAXAGLIPTIN HYDROCHLORIDE
     Indication: DIABETES MELLITUS
     Dosage: 2.5 -1, 000 MG, ONE TABLET TWICE DAILY
     Dates: start: 20150109
  12. PREVACID [Concomitant]
     Active Substance: LANSOPRAZOLE
     Indication: GASTROOESOPHAGEAL REFLUX DISEASE
     Dates: start: 20150107
  13. POTASSIUM CHLORIDE. [Concomitant]
     Active Substance: POTASSIUM CHLORIDE
     Dates: start: 20150721
  14. FAMOTIDINE. [Concomitant]
     Active Substance: FAMOTIDINE
     Route: 048
     Dates: start: 20150720
  15. DALTEPARIN [Concomitant]
     Active Substance: DALTEPARIN
     Dates: start: 20150718
  16. LANTUS SOLOSTAR [Concomitant]
     Active Substance: INSULIN GLARGINE
     Dates: start: 20151223
  17. SINGULAIR [Concomitant]
     Active Substance: MONTELUKAST SODIUM
     Indication: HYPERSENSITIVITY
     Dates: start: 20150501
  18. ZETIA [Concomitant]
     Active Substance: EZETIMIBE
     Dates: start: 20150811

REACTIONS (7)
  - Diabetic ketoacidosis [Recovered/Resolved]
  - Pancreatitis acute [Recovered/Resolved]
  - Diabetic nephropathy [Unknown]
  - Diabetic neuropathy [Unknown]
  - Chronic kidney disease [Unknown]
  - Type 1 diabetes mellitus [Unknown]
  - Renal injury [Unknown]

NARRATIVE: CASE EVENT DATE: 201507
